FAERS Safety Report 21407306 (Version 1)
Quarter: 2022Q4

REPORT INFORMATION
  Report Type: Report from Study
  Country: PR (occurrence: PR)
  Receive Date: 20221004
  Receipt Date: 20221004
  Transmission Date: 20230113
  Serious: No
  Sender: FDA-Public Use
  Company Number: PR-ABBVIE-4133519

PATIENT
  Sex: Female
  Weight: 74.842 kg

DRUGS (5)
  1. HUMIRA [Suspect]
     Active Substance: ADALIMUMAB
     Indication: Rheumatoid arthritis
     Dosage: 40MG/0.8ML
     Route: 058
     Dates: start: 20140302
  2. COVID-19 mRNA Vaccine BNT162b2 (Tozinameran) [Concomitant]
     Indication: COVID-19 immunisation
     Dosage: THIRD DOSE, ONCE
     Route: 030
     Dates: start: 20220103, end: 20220103
  3. COVID-19 mRNA Vaccine BNT162b2 (Tozinameran) [Concomitant]
     Indication: COVID-19 immunisation
     Dosage: FIRST DOSE, ONCE
     Route: 030
     Dates: start: 20210412, end: 20210412
  4. COVID-19 mRNA Vaccine BNT162b2 (Tozinameran) [Concomitant]
     Indication: COVID-19 immunisation
     Dosage: SECOND DOSE,ONCE
     Route: 030
     Dates: start: 20210510, end: 20210510
  5. HUMIRA [Suspect]
     Active Substance: ADALIMUMAB

REACTIONS (3)
  - COVID-19 [Unknown]
  - Oropharyngeal discomfort [Not Recovered/Not Resolved]
  - Productive cough [Not Recovered/Not Resolved]

NARRATIVE: CASE EVENT DATE: 20220901
